FAERS Safety Report 6155420-4 (Version None)
Quarter: 2009Q2

REPORT INFORMATION
  Report Type: 
  Country: None (occurrence: None)
  Receive Date: 20090415
  Receipt Date: 20090407
  Transmission Date: 20091009
  Serious: Yes (Hospitalization, Other)
  Sender: FDA-Public Use
  Company Number: BE-BAYER-200917315GPV

PATIENT
  Age: 39 Year

DRUGS (5)
  1. NEXAVAR [Suspect]
     Indication: HEPATIC NEOPLASM MALIGNANT
     Route: 048
     Dates: start: 20081201
  2. NEXAVAR [Suspect]
     Dosage: TOTAL DAILY DOSE: 800 MG  UNIT DOSE: 200 MG
     Route: 048
     Dates: start: 20090123
  3. NEXAVAR [Suspect]
     Dosage: UNIT DOSE: 200 MG
     Route: 048
     Dates: start: 20090201
  4. NEXAVAR [Suspect]
     Route: 048
     Dates: start: 20090220
  5. LORMETAZEPAM [Concomitant]
     Indication: DRUG USE FOR UNKNOWN INDICATION
     Route: 065

REACTIONS (6)
  - ANOREXIA [None]
  - INSOMNIA [None]
  - MALAISE [None]
  - OESOPHAGEAL VARICES HAEMORRHAGE [None]
  - THROMBOCYTOPENIA [None]
  - VARICES OESOPHAGEAL [None]
